FAERS Safety Report 15537812 (Version 2)
Quarter: 2018Q4

REPORT INFORMATION
  Report Type: Spontaneous
  Country: US (occurrence: US)
  Receive Date: 20181022
  Receipt Date: 20181119
  Transmission Date: 20190205
  Serious: Yes (Hospitalization, Other)
  Sender: FDA-Public Use
  Company Number: PHHY2018US128845

PATIENT
  Age: 44 Year
  Sex: Male

DRUGS (3)
  1. MYCOPHENOLATE MOFETIL. [Suspect]
     Active Substance: MYCOPHENOLATE MOFETIL
     Dosage: 1500 MG, BID
     Route: 065
  2. PREDNISONE. [Suspect]
     Active Substance: PREDNISONE
     Indication: DERMATITIS CONTACT
     Dosage: 40-60 MG DAILY
     Route: 065
  3. MYCOPHENOLATE MOFETIL. [Suspect]
     Active Substance: MYCOPHENOLATE MOFETIL
     Indication: DERMATITIS CONTACT
     Dosage: UNK
     Route: 065

REACTIONS (11)
  - Cellulitis [Unknown]
  - Sepsis [Unknown]
  - Depression [Unknown]
  - Infection [Recovered/Resolved]
  - Pneumonia [Unknown]
  - Osteoporosis [Unknown]
  - Weight increased [Unknown]
  - Product use in unapproved indication [Unknown]
  - Oesophageal candidiasis [Unknown]
  - Compression fracture [Unknown]
  - Cataract [Unknown]
